FAERS Safety Report 8471239-3 (Version None)
Quarter: 2012Q2

REPORT INFORMATION
  Report Type: 
  Country: None (occurrence: None)
  Receive Date: 20120621
  Receipt Date: 20120604
  Transmission Date: 20120825
  Serious: Yes (Other)
  Sender: FDA-Public Use
  Company Number: CIO2009503

PATIENT
  Age: 29 Year
  Sex: Female

DRUGS (3)
  1. ANTIHYPERTENSIVES [Concomitant]
  2. BISMUTH SUBSALICYLATE [Suspect]
     Dosage: 2 TBSP, 1 ONLY, ORAL
     Route: 048
     Dates: start: 20120501, end: 20120501
  3. ANTI-ASTHMATICS [Concomitant]

REACTIONS (3)
  - DOCUMENTED HYPERSENSITIVITY TO ADMINISTERED DRUG [None]
  - ASTHMA [None]
  - HYPERSENSITIVITY [None]
